FAERS Safety Report 9228152 (Version 1)
Quarter: 2013Q2

REPORT INFORMATION
  Report Type: Spontaneous
  Country: US (occurrence: None)
  Receive Date: 20130411
  Receipt Date: 20130411
  Transmission Date: 20140414
  Serious: Yes (Disabling)
  Sender: FDA-Public Use
  Company Number: None

PATIENT
  Age: 51 Year
  Sex: Male
  Weight: 113.4 kg

DRUGS (1)
  1. LORAZEPAM [Suspect]
     Indication: INSOMNIA
     Dates: start: 20130329

REACTIONS (5)
  - Deafness [None]
  - Hallucination [None]
  - Muscular weakness [None]
  - Muscular weakness [None]
  - Hypoaesthesia [None]
